FAERS Safety Report 6981358-6 (Version None)
Quarter: 2010Q3

REPORT INFORMATION
  Report Type: 
  Country: None (occurrence: None)
  Receive Date: 20100909
  Receipt Date: 20100818
  Transmission Date: 20110219
  Serious: Yes (Hospitalization, Disabling, Other)
  Sender: FDA-Public Use
  Company Number: 017852

PATIENT
  Age: 29 Year
  Sex: Female

DRUGS (4)
  1. KEPPRA [Suspect]
     Indication: COMPLEX PARTIAL SEIZURES
     Dosage: 1000 MG
     Dates: start: 20100624
  2. LACOSAMIDE [Suspect]
     Dosage: 400 MG
     Dates: end: 20100624
  3. LAMOTRIGINE [Suspect]
     Indication: COMPLEX PARTIAL SEIZURES
     Dosage: 800 MG ORAL
     Route: 048
     Dates: start: 20100415, end: 20100801
  4. LAMOTRIGINE [Suspect]
     Indication: COMPLEX PARTIAL SEIZURES
     Dosage: 800 MG ORAL
     Route: 048
     Dates: end: 20100415

REACTIONS (6)
  - ABASIA [None]
  - COMPLEX PARTIAL SEIZURES [None]
  - DIPLOPIA [None]
  - THERAPEUTIC AGENT TOXICITY [None]
  - VISION BLURRED [None]
  - VOMITING [None]
